FAERS Safety Report 16017055 (Version 2)
Quarter: 2019Q2

REPORT INFORMATION
  Report Type: Report from Study
  Country: US (occurrence: US)
  Receive Date: 20190228
  Receipt Date: 20190523
  Transmission Date: 20190711
  Serious: Yes (Other)
  Sender: FDA-Public Use
  Company Number: US-ASTELLAS-2019US003930

PATIENT
  Sex: Female

DRUGS (1)
  1. ASP2215 [Suspect]
     Active Substance: GILTERITINIB
     Indication: ACUTE MYELOID LEUKAEMIA
     Route: 048
     Dates: start: 20190122

REACTIONS (7)
  - Oedema peripheral [Unknown]
  - Upper-airway cough syndrome [Unknown]
  - Chest X-ray abnormal [Unknown]
  - Platelet count decreased [Unknown]
  - Productive cough [Unknown]
  - Insomnia [Unknown]
  - Intentional dose omission [Unknown]
